FAERS Safety Report 6183228-2 (Version None)
Quarter: 2009Q2

REPORT INFORMATION
  Report Type: 
  Country: None (occurrence: None)
  Receive Date: 20090507
  Receipt Date: 20090430
  Transmission Date: 20091009
  Serious: Yes (Other)
  Sender: FDA-Public Use
  Company Number: FR-SANOFI-SYNTHELABO-A02200901160

PATIENT
  Age: 58 Year
  Sex: Female

DRUGS (4)
  1. ANTIDEPRESSANT DRUG [Concomitant]
     Indication: DEPRESSION
     Dosage: UNK
     Route: 065
  2. ANTINEOPLASTIC AGENTS [Concomitant]
     Indication: BREAST CANCER
     Dosage: UNK
     Route: 065
  3. CORTANCYL [Concomitant]
     Indication: BREAST CANCER
     Dosage: UNK
     Route: 065
  4. PLAQUENIL [Suspect]
     Indication: ARTHROPATHY
     Route: 048
     Dates: start: 19890101

REACTIONS (4)
  - FACIAL BONES FRACTURE [None]
  - FALL [None]
  - VERTIGO [None]
  - VISUAL IMPAIRMENT [None]
